FAERS Safety Report 8881706 (Version 1)
Quarter: 2012Q4

REPORT INFORMATION
  Report Type: 
  Country: US (occurrence: US)
  Receive Date: 20121101
  Receipt Date: 20121101
  Transmission Date: 20130627
  Serious: No
  Sender: FDA-Public Use
  Company Number: US-PFIZER INC-2012272693

PATIENT
  Age: 29 Year
  Sex: Female
  Weight: 77.1 kg

DRUGS (6)
  1. NEURONTIN [Suspect]
     Indication: NEUROPATHY
     Dosage: 300 mg, 3x/day
  2. NEURONTIN [Suspect]
     Indication: NERVE DAMAGE
  3. PREVACID [Suspect]
     Indication: GASTRIC DISORDER
     Dosage: 30 mg, daily
  4. FLEXERIL [Suspect]
     Indication: MUSCLE RELAXANT
     Dosage: 10 mg, 3x/day
  5. ETODOLAC [Suspect]
     Indication: INFLAMMATION
     Dosage: 300 mg, 3x/day
  6. FENTANYL [Suspect]
     Indication: PAIN
     Dosage: 50 mg, in every three days

REACTIONS (1)
  - Somnolence [Not Recovered/Not Resolved]
